FAERS Safety Report 9355164 (Version 1)
Quarter: 2013Q2

REPORT INFORMATION
  Report Type: Spontaneous
  Country: US (occurrence: US)
  Receive Date: 20130619
  Receipt Date: 20130619
  Transmission Date: 20140414
  Serious: Yes (Hospitalization, Other)
  Sender: FDA-Public Use
  Company Number: PHEH2013US012856

PATIENT
  Sex: Male

DRUGS (1)
  1. EXELON PATCH [Suspect]
     Indication: DEMENTIA
     Dosage: UNK UKN, UNK
     Route: 062
     Dates: start: 201006

REACTIONS (7)
  - Abnormal behaviour [Recovering/Resolving]
  - Aggression [Recovering/Resolving]
  - Hypersomnia [Recovering/Resolving]
  - Condition aggravated [Recovering/Resolving]
  - Feeding disorder [Recovering/Resolving]
  - Wrong technique in drug usage process [Recovering/Resolving]
  - Gait disturbance [Recovering/Resolving]
